FAERS Safety Report 5536741-2 (Version None)
Quarter: 2007Q4

REPORT INFORMATION
  Report Type: 
  Country: None (occurrence: None)
  Receive Date: 20071206
  Receipt Date: 20070427
  Transmission Date: 20080405
  Serious: Yes (Hospitalization, Other)
  Sender: FDA-Public Use
  Company Number: US-AMGEN-STX213550

PATIENT
  Sex: Female
  Weight: 59 kg

DRUGS (3)
  1. ENBREL [Suspect]
     Indication: RHEUMATOID ARTHRITIS
     Route: 058
     Dates: start: 20041101, end: 20041201
  2. PREDNISONE TAB [Concomitant]
  3. METHOTREXATE [Concomitant]
     Dates: start: 20040101, end: 20050501

REACTIONS (8)
  - BRONCHIECTASIS [None]
  - BRONCHOPNEUMONIA [None]
  - CARDIAC FAILURE CONGESTIVE [None]
  - CERVIX CARCINOMA [None]
  - HYPERSENSITIVITY [None]
  - OPEN WOUND [None]
  - URTICARIA [None]
  - UTERINE CANCER [None]
